FAERS Safety Report 10677260 (Version 3)
Quarter: 2015Q1

REPORT INFORMATION
  Report Type: Spontaneous
  Country: IT (occurrence: IT)
  Receive Date: 20141226
  Receipt Date: 20150319
  Transmission Date: 20150720
  Serious: Yes (Death)
  Sender: FDA-Public Use
  Company Number: IT-MERCK-1412ITA010863

PATIENT
  Age: 52 Year
  Sex: Male

DRUGS (10)
  1. TRUVADA [Concomitant]
     Active Substance: EMTRICITABINE\TENOFOVIR DISOPROXIL FUMARATE
     Dosage: UNK
     Route: 048
     Dates: start: 201409
  2. REBETOL [Suspect]
     Active Substance: RIBAVIRIN
     Indication: HEPATIC CIRRHOSIS
     Dosage: 800 MG, QD
     Route: 048
     Dates: start: 20141023, end: 20141201
  3. METOPROLOL [Concomitant]
     Active Substance: METOPROLOL
     Dosage: UNK
     Route: 048
     Dates: start: 201403
  4. ISENTRESS [Concomitant]
     Active Substance: RALTEGRAVIR POTASSIUM
     Dosage: UNK
     Route: 048
     Dates: start: 201409
  5. BENERVA [Concomitant]
     Active Substance: THIAMINE
     Dosage: 300 MG, CYCLICAL
     Dates: start: 2012
  6. DIBASE [Concomitant]
     Active Substance: CHOLECALCIFEROL
     Dosage: 1 DF, QM (STRENGTH: 100000 IU/ML)
     Dates: start: 2012
  7. FOLINA (FOLIC ACID) [Concomitant]
     Active Substance: FOLIC ACID
     Dosage: 5 MG, CYCLICAL
     Dates: start: 2012
  8. TELAPREVIR [Suspect]
     Active Substance: TELAPREVIR
     Indication: HEPATIC CIRRHOSIS
     Dosage: 6 DF, QD (6 UNITS POSOLOGICAL)
     Route: 048
     Dates: start: 20141023, end: 20141201
  9. PEGASYS [Suspect]
     Active Substance: PEGINTERFERON ALFA-2A
     Indication: HEPATIC CIRRHOSIS
     Dosage: 180 MICROGRAM, QW
     Route: 058
     Dates: start: 20141023, end: 20141201
  10. OMEPRAZOLE. [Concomitant]
     Active Substance: OMEPRAZOLE
     Dosage: UNK
     Dates: start: 201403

REACTIONS (2)
  - Sudden death [Fatal]
  - Cardiac arrest [Fatal]

NARRATIVE: CASE EVENT DATE: 20141201
